FAERS Safety Report 7298453-7 (Version None)
Quarter: 2011Q1

REPORT INFORMATION
  Report Type: 
  Country: None (occurrence: None)
  Receive Date: 20110204
  Receipt Date: 20110124
  Transmission Date: 20110831
  Serious: Yes (Disabling)
  Sender: FDA-Public Use
  Company Number: 026039

PATIENT
  Sex: Female

DRUGS (7)
  1. FUROSEMIDE [Concomitant]
  2. LANTUS [Concomitant]
  3. ACTRAPID /00646001/ [Concomitant]
  4. PLAVIX [Concomitant]
  5. XYZALL /01530201/ (XYZALL) [Suspect]
     Indication: PRURITUS
     Dosage: (5 MG ORAL)
     Route: 048
     Dates: start: 20100422, end: 20100427
  6. XYZALL /01530201/ (XYZALL) [Suspect]
     Indication: PRURITUS
     Dosage: (5 MG ORAL)
     Route: 048
     Dates: start: 20100502
  7. TAHOR [Concomitant]

REACTIONS (2)
  - GAIT DISTURBANCE [None]
  - BALANCE DISORDER [None]
